FAERS Safety Report 5881859-8 (Version None)
Quarter: 2008Q3

REPORT INFORMATION
  Report Type: 
  Country: None (occurrence: None)
  Receive Date: 20080912
  Receipt Date: 20080709
  Transmission Date: 20090109
  Serious: No
  Sender: FDA-Public Use
  Company Number: US-ABBOTT-08P-163-0462860-00

PATIENT
  Sex: Female
  Weight: 52.664 kg

DRUGS (9)
  1. HUMIRA [Suspect]
     Indication: CROHN'S DISEASE
     Route: 058
     Dates: start: 20080407
  2. RANITIDINE [Concomitant]
     Indication: CROHN'S DISEASE
     Route: 048
  3. FOSAVANCE [Concomitant]
     Indication: OSTEOPENIA
     Dosage: 1 WEEKLY
     Route: 048
  4. FEXOFENADINE [Concomitant]
     Indication: HYPERSENSITIVITY
     Route: 048
  5. ATENOLOL [Concomitant]
     Indication: HYPERTENSION
     Route: 048
  6. POTASSIUM CHLORIDE [Concomitant]
     Indication: MINERAL SUPPLEMENTATION
     Route: 048
  7. FISH OIL [Concomitant]
     Indication: VITAMIN SUPPLEMENTATION
     Route: 048
  8. CALCIUM-SANDOZ [Concomitant]
     Indication: MINERAL SUPPLEMENTATION
     Route: 048
  9. MULTI-VITAMIN [Concomitant]
     Indication: VITAMIN SUPPLEMENTATION
     Route: 048

REACTIONS (1)
  - OEDEMA PERIPHERAL [None]
